FAERS Safety Report 6542461-8 (Version None)
Quarter: 2010Q1

REPORT INFORMATION
  Report Type: 
  Country: None (occurrence: None)
  Receive Date: 20100119
  Receipt Date: 20100108
  Transmission Date: 20100710
  Serious: Yes (Death)
  Sender: FDA-Public Use
  Company Number: GB-MILLENNIUM PHARMACEUTICALS, INC.-2009-04962

PATIENT

DRUGS (13)
  1. VELCADE [Suspect]
     Indication: MULTIPLE MYELOMA
     Dosage: UNK
     Route: 065
     Dates: end: 20091110
  2. DEXAMETHASONE [Concomitant]
     Indication: MULTIPLE MYELOMA
     Dosage: UNK
  3. ACICLOVIR [Concomitant]
     Indication: PROPHYLAXIS
     Dosage: 200 MG, UNK
     Route: 048
     Dates: start: 20090801
  4. AMITRIPTYLINE [Concomitant]
     Indication: PAIN
     Dosage: 50 MG, UNK
     Route: 048
  5. MIDODRINE HYDROCHLORIDE [Concomitant]
     Indication: HYPERTENSION
     Dosage: 5 MG, UNK
     Route: 048
  6. CALCICHEW [Concomitant]
     Indication: BLOOD CALCIUM
     Route: 048
  7. FLUDROCORTISONE [Concomitant]
     Dosage: 50 UG, UNK
     Route: 048
  8. FLUCONAZOLE [Concomitant]
     Indication: PROPHYLAXIS
     Dosage: 50 MG, UNK
     Route: 048
     Dates: start: 20090801
  9. ALFACALCIDOL [Concomitant]
     Dosage: 0.25 MG, UNK
     Route: 048
  10. FOLIC ACID [Concomitant]
     Dosage: 5 MG, UNK
     Route: 048
  11. OMEPRAZOLE [Concomitant]
     Indication: PROPHYLAXIS
     Dosage: 20 MG, UNK
     Dates: start: 20090801
  12. SIMVASTATIN [Concomitant]
     Indication: BLOOD CHOLESTEROL
     Dosage: 20 MG, UNK
     Route: 048
  13. SEPTRIN [Suspect]
     Indication: PROPHYLAXIS
     Dosage: 960 MG, UNK
     Dates: start: 20090801

REACTIONS (1)
  - AORTIC STENOSIS [None]
